FAERS Safety Report 5274180-2 (Version None)
Quarter: 2007Q1

REPORT INFORMATION
  Report Type: 
  Country: None (occurrence: None)
  Receive Date: 20070323
  Receipt Date: 20070319
  Transmission Date: 20070707
  Serious: Yes (Hospitalization, Disabling, Other)
  Sender: FDA-Public Use
  Company Number: 2006UW06359

PATIENT
  Age: 82 Year
  Sex: Female

DRUGS (8)
  1. CRESTOR [Suspect]
     Indication: BLOOD CHOLESTEROL
     Route: 048
     Dates: start: 20040109, end: 20050101
  2. CRESTOR [Suspect]
     Route: 048
     Dates: start: 20050101, end: 20060208
  3. CRESTOR [Suspect]
     Route: 048
     Dates: start: 20060209, end: 20060403
  4. ADALAT [Concomitant]
     Indication: BLOOD PRESSURE ABNORMAL
  5. ASPIRIN [Concomitant]
  6. MAXEPA [Concomitant]
  7. DILANTIN [Concomitant]
  8. SYNTHROID [Concomitant]
     Indication: HYPOTHYROIDISM

REACTIONS (8)
  - ALANINE AMINOTRANSFERASE INCREASED [None]
  - ASPARTATE AMINOTRANSFERASE INCREASED [None]
  - BLOOD CREATINE PHOSPHOKINASE INCREASED [None]
  - BLOOD LACTATE DEHYDROGENASE INCREASED [None]
  - C-REACTIVE PROTEIN INCREASED [None]
  - COORDINATION ABNORMAL [None]
  - MYOPATHY [None]
  - URINARY TRACT INFECTION [None]
